FAERS Safety Report 9564876 (Version 2)
Quarter: 2013Q4

REPORT INFORMATION
  Report Type: Spontaneous
  Country: FR (occurrence: FR)
  Receive Date: 20130930
  Receipt Date: 20131017
  Transmission Date: 20140711
  Serious: Yes (Other)
  Sender: FDA-Public Use
  Company Number: FR-PFIZER INC-2013276436

PATIENT
  Age: 54 Year
  Sex: Female

DRUGS (2)
  1. ALDACTONE [Suspect]
     Indication: HYPERTENSION
     Dosage: 50 MG, DAILY
     Dates: start: 1990
  2. ALDACTONE [Suspect]
     Dosage: 25 MG, DAILY

REACTIONS (1)
  - Endometrial cancer [Recovered/Resolved]
